FAERS Safety Report 8149665-1 (Version None)
Quarter: 2012Q1

REPORT INFORMATION
  Report Type: 
  Country: None (occurrence: None)
  Receive Date: 20120218
  Receipt Date: 20111115
  Transmission Date: 20120608
  Serious: No
  Sender: FDA-Public Use
  Company Number: US-ALLERGAN-1115014US

PATIENT
  Sex: Female

DRUGS (2)
  1. BOTULINUM TOXIN TYPE A [Suspect]
     Dosage: UNSPECIFIED SITE AND DOSE
     Dates: start: 20110801, end: 20110801
  2. BOTULINUM TOXIN TYPE A [Suspect]
     Indication: PRODUCT USED FOR UNKNOWN INDICATION
     Dosage: UNSPECIFIED SITE AND DOSE
     Dates: start: 20110201, end: 20110201

REACTIONS (2)
  - MUSCULAR WEAKNESS [None]
  - NECK PAIN [None]
